FAERS Safety Report 8663329 (Version 4)
Quarter: 2013Q2

REPORT INFORMATION
  Report Type: Report from Study
  Country: JP (occurrence: JP)
  Receive Date: 20120713
  Receipt Date: 20130410
  Transmission Date: 20140414
  Serious: Yes (Hospitalization)
  Sender: FDA-Public Use
  Company Number: JP-009507513-1207JPN001492

PATIENT
  Age: 70 Year
  Sex: Male
  Weight: 50 kg

DRUGS (6)
  1. PEGINTRON [Suspect]
     Indication: CHRONIC HEPATITIS C
     Dosage: 1.5 MICROGRAM PER KILOGRAM, QW
     Route: 058
     Dates: start: 20120518, end: 20120622
  2. REBETOL [Suspect]
     Indication: CHRONIC HEPATITIS C
     Dosage: 600 MG, QD
     Route: 048
     Dates: start: 20120518, end: 20120622
  3. TELAVIC [Suspect]
     Indication: CHRONIC HEPATITIS C
     Dosage: 2250 MG, QD
     Route: 048
     Dates: start: 20120518, end: 20120523
  4. TELAVIC [Suspect]
     Dosage: 1500 MG, QD
     Route: 048
     Dates: start: 20120524, end: 20120604
  5. TELAVIC [Suspect]
     Dosage: 750 MG, QD
     Route: 048
     Dates: start: 20120605, end: 20120629
  6. ZYLORIC [Concomitant]
     Indication: BLOOD URIC ACID INCREASED
     Dosage: 400 MG, QD, FORMULATION: POR
     Route: 048
     Dates: start: 20120615, end: 20120629

REACTIONS (4)
  - Blood creatinine increased [Not Recovered/Not Resolved]
  - Blood creatinine increased [Recovering/Resolving]
  - Blood creatinine increased [Unknown]
  - Blood creatinine increased [Unknown]
